FAERS Safety Report 7608787-1 (Version None)
Quarter: 2011Q3

REPORT INFORMATION
  Report Type: 
  Country: None (occurrence: None)
  Receive Date: 20110713
  Receipt Date: 20110713
  Transmission Date: 20111222
  Serious: Yes (Death)
  Sender: FDA-Public Use
  Company Number: None

PATIENT
  Sex: Male
  Weight: 86.1834 kg

DRUGS (7)
  1. FINASTERIDE [Concomitant]
  2. NAMENDA [Concomitant]
  3. QUETIAPINE [Suspect]
     Dosage: 1/2 TABLET 12 ORAL
     Route: 048
     Dates: start: 20110201, end: 20110326
  4. FUROSEMIDE [Concomitant]
  5. GLIMEPIRIDE [Concomitant]
  6. TAMSULOSIN HCT [Concomitant]
  7. TOPROL-XL [Concomitant]

REACTIONS (2)
  - WALKING AID USER [None]
  - DYSSTASIA [None]
